FAERS Safety Report 21481020 (Version 2)
Quarter: 2022Q4

REPORT INFORMATION
  Report Type: Spontaneous
  Country: FR (occurrence: FR)
  Receive Date: 20221019
  Receipt Date: 20221021
  Transmission Date: 20230112
  Serious: Yes (Other)
  Sender: FDA-Public Use
  Company Number: FR-009507513-2210FRA003553

PATIENT
  Age: 63 Year
  Sex: Female

DRUGS (6)
  1. KEYTRUDA [Suspect]
     Active Substance: PEMBROLIZUMAB
     Indication: Metastatic renal cell carcinoma
     Dosage: UNK, CYCLICAL
     Dates: start: 20210326, end: 20210507
  2. KEYTRUDA [Suspect]
     Active Substance: PEMBROLIZUMAB
     Dosage: UNK
     Dates: start: 20211217, end: 20220121
  3. AXITINIB [Suspect]
     Active Substance: AXITINIB
     Indication: Metastatic renal cell carcinoma
     Dosage: 5MG X2/DAY
     Dates: start: 20210326, end: 20210507
  4. AXITINIB [Suspect]
     Active Substance: AXITINIB
     Dosage: 3MG TWICE A DAY
     Dates: start: 20210511, end: 20211203
  5. AXITINIB [Suspect]
     Active Substance: AXITINIB
     Dosage: 3MG TWICE A DAY
     Dates: start: 20220204, end: 20220413
  6. AXITINIB [Suspect]
     Active Substance: AXITINIB
     Dosage: UNK
     Dates: start: 20220516

REACTIONS (9)
  - Malignant neoplasm progression [Unknown]
  - Hepatic cytolysis [Unknown]
  - Nausea [Recovered/Resolved]
  - Nausea [Recovered/Resolved]
  - Weight decreased [Unknown]
  - Diarrhoea [Recovering/Resolving]
  - Food aversion [Unknown]
  - Vomiting [Recovered/Resolved]
  - Therapy partial responder [Unknown]

NARRATIVE: CASE EVENT DATE: 20210507
